FAERS Safety Report 10019049 (Version 1)
Quarter: 2014Q1

REPORT INFORMATION
  Report Type: Other
  Country: US (occurrence: US)
  Receive Date: 20140318
  Receipt Date: 20140318
  Transmission Date: 20141002
  Serious: Yes (Other)
  Sender: FDA-Public Use
  Company Number: US-BRISTOL-MYERS SQUIBB COMPANY-20515383

PATIENT
  Age: 34 Year
  Sex: Female
  Weight: 85 kg

DRUGS (8)
  1. METFORMIN HCL [Suspect]
     Indication: INSULIN RESISTANCE
  2. LEVOTHYROXINE [Suspect]
     Indication: RAYNAUD^S PHENOMENON
  3. LEVOTHYROXINE [Suspect]
     Indication: HYPOTHYROIDISM
  4. PREDNISONE [Suspect]
     Indication: PRENATAL CARE
     Route: 048
  5. HEPARIN SODIUM [Suspect]
     Indication: PRENATAL CARE
     Route: 058
  6. ASPIRIN [Suspect]
     Indication: PRENATAL CARE
     Route: 048
  7. CALCIUM [Suspect]
     Indication: MINERAL SUPPLEMENTATION
     Route: 048
  8. IMMUNOGLOBULIN [Suspect]
     Indication: PRENATAL CARE
     Dosage: EVERY 3-4 WEEKS
     Route: 042

REACTIONS (4)
  - Abortion spontaneous [Unknown]
  - Pregnancy [Recovered/Resolved]
  - Antiphospholipid antibodies [Unknown]
  - B-lymphocyte abnormalities [Unknown]
